FAERS Safety Report 16772837 (Version 4)
Quarter: 2020Q4

REPORT INFORMATION
  Report Type: Spontaneous
  Country: US (occurrence: US)
  Receive Date: 20190904
  Receipt Date: 20201215
  Transmission Date: 20210113
  Serious: Yes (Other)
  Sender: FDA-Public Use
  Company Number: US-SA-2019SA242667

PATIENT

DRUGS (6)
  1. XTANDI [Interacting]
     Active Substance: ENZALUTAMIDE
     Dosage: 160 MG, QD
     Route: 048
  2. XTANDI [Interacting]
     Active Substance: ENZALUTAMIDE
     Dosage: 40 MG
     Route: 048
  3. PLAVIX [Suspect]
     Active Substance: CLOPIDOGREL BISULFATE
     Indication: PRODUCT USED FOR UNKNOWN INDICATION
     Dosage: UNK
     Route: 065
  4. XTANDI [Interacting]
     Active Substance: ENZALUTAMIDE
     Indication: PROSTATE CANCER
     Dosage: 160 MG, QD
     Route: 048
     Dates: start: 20181213
  5. XTANDI [Interacting]
     Active Substance: ENZALUTAMIDE
     Dosage: 160 MG, QD
     Route: 048
  6. XTANDI [Interacting]
     Active Substance: ENZALUTAMIDE
     Dosage: 80 MG [2 DF]
     Route: 048

REACTIONS (12)
  - Macular degeneration [Not Recovered/Not Resolved]
  - Hypoacusis [Not Recovered/Not Resolved]
  - Fatigue [Unknown]
  - Sinusitis [Unknown]
  - Bronchitis [Unknown]
  - Drug interaction [Recovered/Resolved]
  - Somnolence [Unknown]
  - Prostatic specific antigen increased [Unknown]
  - Cellulitis [Unknown]
  - Pain in extremity [Unknown]
  - Post procedural haemorrhage [Not Recovered/Not Resolved]
  - Peripheral swelling [Unknown]

NARRATIVE: CASE EVENT DATE: 20190619
